FAERS Safety Report 24017506 (Version 1)
Quarter: 2024Q2

REPORT INFORMATION
  Report Type: Spontaneous
  Country: US (occurrence: US)
  Receive Date: 20240627
  Receipt Date: 20240627
  Transmission Date: 20240716
  Serious: No
  Sender: FDA-Public Use
  Company Number: US-AMGEN-USASP2024124765

PATIENT
  Age: 45 Year
  Sex: Female

DRUGS (2)
  1. AIMOVIG [Suspect]
     Active Substance: ERENUMAB-AOOE
     Indication: Migraine prophylaxis
     Dosage: 70 MILLIGRAM, QMO
     Route: 065
     Dates: start: 20240528
  2. STELARA [Concomitant]
     Active Substance: USTEKINUMAB
     Indication: Psoriasis
     Dosage: UNK UNK, Q3MO

REACTIONS (3)
  - Product communication issue [Unknown]
  - Injection site pain [Unknown]
  - Fear of injection [Unknown]

NARRATIVE: CASE EVENT DATE: 20240101
